FAERS Safety Report 25453025 (Version 1)
Quarter: 2025Q2

REPORT INFORMATION
  Report Type: Spontaneous
  Country: US (occurrence: US)
  Receive Date: 20250618
  Receipt Date: 20250618
  Transmission Date: 20250717
  Serious: Yes (Other)
  Sender: BOEHRINGER INGELHEIM
  Company Number: US-BoehringerIngelheim-2025-BI-077720

PATIENT
  Age: 69 Year
  Sex: Male
  Weight: 141.00 kg

DRUGS (27)
  1. JARDIANCE [Suspect]
     Active Substance: EMPAGLIFLOZIN
     Indication: Cardiac failure
  2. MOUNJARO [Suspect]
     Active Substance: TIRZEPATIDE
     Indication: Weight decreased
  3. MOUNJARO [Suspect]
     Active Substance: TIRZEPATIDE
     Indication: Type 2 diabetes mellitus
     Dosage: UNKNOWN
  4. MOUNJARO [Suspect]
     Active Substance: TIRZEPATIDE
     Dosage: UNKNOWN
  5. MOUNJARO [Suspect]
     Active Substance: TIRZEPATIDE
     Dosage: UNKNOWN
  6. MOUNJARO [Suspect]
     Active Substance: TIRZEPATIDE
     Dosage: UNKNOWN
  7. MOUNJARO [Suspect]
     Active Substance: TIRZEPATIDE
     Dates: start: 20240502, end: 20250126
  8. MOUNJARO [Suspect]
     Active Substance: TIRZEPATIDE
  9. SYMBICORT [Concomitant]
     Active Substance: BUDESONIDE\FORMOTEROL FUMARATE DIHYDRATE
     Indication: Product used for unknown indication
  10. COLCRYS [Concomitant]
     Active Substance: COLCHICINE
     Indication: Product used for unknown indication
  11. LASIX [Concomitant]
     Active Substance: FUROSEMIDE
     Indication: Product used for unknown indication
  12. TOPROL XL [Concomitant]
     Active Substance: METOPROLOL SUCCINATE
  13. FLOMAX [Concomitant]
     Active Substance: TAMSULOSIN HYDROCHLORIDE
     Indication: Product used for unknown indication
  14. ULTRAM [Concomitant]
     Active Substance: TRAMADOL HYDROCHLORIDE
     Indication: Pain
  15. XANAX [Concomitant]
     Active Substance: ALPRAZOLAM
  16. ALLERGY RELIEF D 12 HOUR [Concomitant]
     Active Substance: LORATADINE\PSEUDOEPHEDRINE SULFATE
     Indication: Product used for unknown indication
  17. VIBRAMYCIN [Concomitant]
     Active Substance: DOXYCYCLINE
     Indication: Product used for unknown indication
  18. MEDROL [Concomitant]
     Active Substance: METHYLPREDNISOLONE
     Indication: Product used for unknown indication
  19. ENTRESTO [Concomitant]
     Active Substance: SACUBITRIL\VALSARTAN
     Indication: Product used for unknown indication
  20. BUMEX [Concomitant]
     Active Substance: BUMETANIDE
     Indication: Product used for unknown indication
  21. ZYLOPRIM [Concomitant]
     Active Substance: ALLOPURINOL
     Indication: Product used for unknown indication
  22. EFFEXOR XR [Concomitant]
     Active Substance: VENLAFAXINE HYDROCHLORIDE
     Indication: Product used for unknown indication
  23. FLEXERIL [Concomitant]
     Active Substance: CYCLOBENZAPRINE HYDROCHLORIDE
     Indication: Product used for unknown indication
  24. COLCRYS [Concomitant]
     Active Substance: COLCHICINE
     Indication: Product used for unknown indication
  25. ALEVE [Concomitant]
     Active Substance: NAPROXEN SODIUM
     Indication: Product used for unknown indication
  26. PRILOSEC [Concomitant]
     Active Substance: OMEPRAZOLE MAGNESIUM
     Indication: Product used for unknown indication
  27. TYLENOL [Concomitant]
     Active Substance: ACETAMINOPHEN
     Indication: Product used for unknown indication

REACTIONS (22)
  - Paraplegia [Unknown]
  - Fall [Recovering/Resolving]
  - Head injury [Unknown]
  - Nervous system disorder [Unknown]
  - Blood pressure decreased [Unknown]
  - Dehydration [Unknown]
  - Walking disability [Recovering/Resolving]
  - Mobility decreased [Recovering/Resolving]
  - Neutrophil count increased [Recovered/Resolved]
  - Monocyte count increased [Recovering/Resolving]
  - White blood cell count increased [Recovered/Resolved]
  - Blood urea increased [Unknown]
  - Blood urea nitrogen/creatinine ratio increased [Unknown]
  - Blood triglycerides increased [Unknown]
  - Blood uric acid decreased [Unknown]
  - Red cell distribution width increased [Unknown]
  - Blood albumin decreased [Unknown]
  - Blood alkaline phosphatase increased [Unknown]
  - Incorrect dose administered [Unknown]
  - Seborrhoea [Unknown]
  - Muscle atrophy [Recovering/Resolving]
  - Constipation [Unknown]

NARRATIVE: CASE EVENT DATE: 20241001
